FAERS Safety Report 5521270-2 (Version None)
Quarter: 2007Q4

REPORT INFORMATION
  Report Type: 
  Country: None (occurrence: None)
  Receive Date: 20071119
  Receipt Date: 20071116
  Transmission Date: 20080405
  Serious: Yes (Death)
  Sender: FDA-Public Use
  Company Number: GB-ROXANE LABORATORIES, INC-2007-UK-03543UK

PATIENT
  Age: 55 Year
  Sex: Female
  Weight: 38 kg

DRUGS (2)
  1. MORPHINE SUL INJ [Suspect]
     Indication: EMPHYSEMA
  2. MORPHINE SUL INJ [Suspect]
     Indication: PALLIATIVE CARE

REACTIONS (1)
  - DEATH [None]
